FAERS Safety Report 4836163-3 (Version None)
Quarter: 2005Q4

REPORT INFORMATION
  Report Type: 
  Country: None (occurrence: None)
  Receive Date: 20051121
  Receipt Date: 20051121
  Transmission Date: 20060501
  Serious: Yes (Other)
  Sender: FDA-Public Use
  Company Number: None

PATIENT
  Age: 49 Year
  Sex: Male
  Weight: 95.2554 kg

DRUGS (1)
  1. PAXIL [Suspect]
     Indication: SMOKING CESSATION THERAPY
     Dosage: 1      DAILY    PO  (DURATION: APPROX 1 YEAR)
     Route: 048

REACTIONS (3)
  - DRUG DOSE OMISSION [None]
  - DRUG WITHDRAWAL SYNDROME [None]
  - LOSS OF CONSCIOUSNESS [None]
